FAERS Safety Report 10892569 (Version 1)
Quarter: 2015Q1

REPORT INFORMATION
  Report Type: Spontaneous
  Country: US (occurrence: US)
  Receive Date: 20150306
  Receipt Date: 20150306
  Transmission Date: 20150721
  Serious: No
  Sender: FDA-Public Use
  Company Number: US-BAYER-2015-034156

PATIENT
  Age: 28 Year
  Sex: Female
  Weight: 82 kg

DRUGS (7)
  1. ALEVE [Suspect]
     Active Substance: NAPROXEN SODIUM
     Indication: PAIN
     Dosage: 2 DF, OTHER FREQUENCY
     Route: 048
  2. VITAMIN C [Concomitant]
     Active Substance: ASCORBIC ACID
     Dosage: UNK
  3. VITAMIN D [Concomitant]
     Active Substance: CHOLECALCIFEROL
     Dosage: UNK
  4. ALOE VERA [Concomitant]
     Active Substance: ALOE VERA LEAF
  5. ALEVE [Suspect]
     Active Substance: NAPROXEN SODIUM
     Indication: FIBROMYALGIA
  6. ALEVE [Suspect]
     Active Substance: NAPROXEN SODIUM
     Indication: CYSTITIS INTERSTITIAL
     Dosage: 2 DF, BID
     Route: 048
  7. TESSALON [Concomitant]
     Active Substance: BENZONATATE

REACTIONS (1)
  - Extra dose administered [Unknown]

NARRATIVE: CASE EVENT DATE: 201410
